FAERS Safety Report 18089935 (Version 1)
Quarter: 2020Q3

REPORT INFORMATION
  Report Type: Spontaneous
  Country: IT (occurrence: IT)
  Receive Date: 20200730
  Receipt Date: 20200730
  Transmission Date: 20201103
  Serious: Yes (Hospitalization, Other)
  Sender: FDA-Public Use
  Company Number: IT-AUROBINDO-AUR-APL-2011-06011

PATIENT
  Age: 36 Year
  Sex: Female
  Weight: 49 kg

DRUGS (4)
  1. METFORMIN [Suspect]
     Active Substance: METFORMIN HYDROCHLORIDE
     Indication: PRODUCT USED FOR UNKNOWN INDICATION
     Dosage: 1000 MG,3 TIMES A DAY,
     Route: 065
  2. AMILORIDE + HIDROCLOROTIAZIDA [Suspect]
     Active Substance: AMILORIDE HYDROCHLORIDE\HYDROCHLOROTHIAZIDE
     Indication: PRODUCT USED FOR UNKNOWN INDICATION
     Dosage: 50/5MG, DAILY
     Route: 065
  3. LEVOTHYROXINE SODIUM. [Suspect]
     Active Substance: LEVOTHYROXINE SODIUM
     Indication: PRODUCT USED FOR UNKNOWN INDICATION
     Dosage: 100 MICROGRAM, DAILY
     Route: 065
  4. BISACODYL. [Suspect]
     Active Substance: BISACODYL
     Indication: LAXATIVE SUPPORTIVE CARE
     Dosage: UNK UNK,DAILY,
     Route: 065

REACTIONS (10)
  - Drug abuse [Unknown]
  - Lactic acidosis [Unknown]
  - Dehydration [Recovered/Resolved]
  - Hypokalaemia [Recovered/Resolved]
  - Hyponatraemia [Recovered/Resolved]
  - Hypocalcaemia [Recovered/Resolved]
  - Constipation [Unknown]
  - Hormone level abnormal [Unknown]
  - Acute kidney injury [Recovered/Resolved]
  - Weight decreased [Unknown]
